FAERS Safety Report 9779971 (Version 2)
Quarter: 2013Q4

REPORT INFORMATION
  Report Type: Report from Study
  Country: DE (occurrence: DE)
  Receive Date: 20131223
  Receipt Date: 20131223
  Transmission Date: 20140711
  Serious: Yes (Hospitalization)
  Sender: FDA-Public Use
  Company Number: DE-ABBVIE-09P-062-0583229-00

PATIENT
  Age: 20 Year
  Sex: Male
  Weight: 55 kg

DRUGS (15)
  1. HUMIRA [Suspect]
     Indication: CROHN^S DISEASE
     Route: 058
     Dates: start: 200901
  2. HUMIRA [Suspect]
     Route: 058
     Dates: end: 20090522
  3. HUMIRA [Suspect]
     Route: 058
     Dates: start: 20131211
  4. HUMIRA [Suspect]
     Route: 058
     Dates: start: 20090226
  5. ENTOCORT [Suspect]
     Indication: CROHN^S DISEASE
  6. PREDNISOLONE [Suspect]
     Indication: CROHN^S DISEASE
  7. INFUSIONS [Concomitant]
     Indication: PRODUCT USED FOR UNKNOWN INDICATION
  8. ANTIBIOTICS [Concomitant]
     Indication: PRODUCT USED FOR UNKNOWN INDICATION
  9. MESALAZINE [Concomitant]
     Indication: CROHN^S DISEASE
  10. ZN OROTAT [Concomitant]
     Indication: PRODUCT USED FOR UNKNOWN INDICATION
  11. TINCTURA OPII [Concomitant]
     Indication: PAIN
  12. ENOXAPARIN SODIUM [Concomitant]
     Indication: THROMBOSIS PROPHYLAXIS
     Route: 050
  13. LIQUIGEN [Concomitant]
     Indication: PRODUCT USED FOR UNKNOWN INDICATION
  14. CA++ [Concomitant]
     Indication: MINERAL SUPPLEMENTATION
  15. PERENTEROL [Concomitant]
     Indication: PRODUCT USED FOR UNKNOWN INDICATION
     Route: 048

REACTIONS (9)
  - Vena cava thrombosis [Recovered/Resolved]
  - Device related infection [Recovering/Resolving]
  - Staphylococcal infection [Unknown]
  - Pneumonia [Recovered/Resolved]
  - Lung abscess [Recovered/Resolved]
  - Chills [Unknown]
  - Tinnitus [Unknown]
  - C-reactive protein increased [Unknown]
  - Pharyngitis [Unknown]
